FAERS Safety Report 8201360-6 (Version None)
Quarter: 2012Q1

REPORT INFORMATION
  Report Type: 
  Country: None (occurrence: None)
  Receive Date: 20120312
  Receipt Date: 20120306
  Transmission Date: 20120608
  Serious: No
  Sender: FDA-Public Use
  Company Number: US-BAYER-2012-022517

PATIENT
  Age: 75 Year
  Sex: Male
  Weight: 95 kg

DRUGS (5)
  1. LEVOTHYROXINE SODIUM [Concomitant]
  2. HYDROCHLOROTHIAZIDE [Concomitant]
  3. METOPROLOL SUCCINATE [Concomitant]
  4. ALEVE (CAPLET) [Suspect]
     Indication: ACNE
     Dosage: 1 DF, QD
     Route: 048
     Dates: start: 20120301
  5. QUINAPRIL [Concomitant]

REACTIONS (1)
  - ORAL HERPES [None]
